FAERS Safety Report 6119317-8 (Version None)
Quarter: 2009Q1

REPORT INFORMATION
  Report Type: 
  Country: None (occurrence: None)
  Receive Date: 20090316
  Receipt Date: 20090306
  Transmission Date: 20090719
  Serious: Yes (Other)
  Sender: FDA-Public Use
  Company Number: PHHY2009GB08866

PATIENT
  Age: 71 Year
  Sex: Male

DRUGS (3)
  1. ZOMETA [Suspect]
     Indication: METASTASES TO BONE
     Dosage: UNK
     Dates: start: 20070123
  2. ZOMETA [Suspect]
     Indication: PROSTATE CANCER
  3. GOSERELIN [Concomitant]

REACTIONS (1)
  - OSTEONECROSIS [None]
